FAERS Safety Report 6270793-X (Version None)
Quarter: 2009Q3

REPORT INFORMATION
  Report Type: 
  Country: None (occurrence: None)
  Receive Date: 20090716
  Receipt Date: 20090707
  Transmission Date: 20100115
  Serious: Yes (Hospitalization)
  Sender: FDA-Public Use
  Company Number: FR-WYE-H10096809

PATIENT
  Age: 84 Year
  Sex: Male

DRUGS (9)
  1. CORDARONE [Interacting]
     Indication: DRUG USE FOR UNKNOWN INDICATION
     Dosage: UNKNOWN DATE TO 19-JAN-2009; DOSE NOT PROVIDED
     Route: 048
  2. CORDARONE [Interacting]
     Dosage: 26-JAN-2009 TO CONTINUING; DOSE NOT PROVIDED
  3. SINTROM [Suspect]
     Indication: DRUG USE FOR UNKNOWN INDICATION
     Dosage: UNKNOWN DATE TO 19-JAN-2009; DOSE NOT PROVIDED
     Route: 048
  4. SINTROM [Suspect]
     Dosage: 26-JAN-2009 TO CONTINUES; DOSE NOT PROVIDED
     Route: 048
  5. GUTRON [Concomitant]
     Indication: DRUG USE FOR UNKNOWN INDICATION
     Dosage: UNKNOWN
  6. ALLOPURINOL [Concomitant]
     Indication: DRUG USE FOR UNKNOWN INDICATION
     Dosage: UNKNOWN
     Route: 048
     Dates: end: 20090113
  7. LASIX [Concomitant]
     Indication: DRUG USE FOR UNKNOWN INDICATION
     Dosage: UNKNOWN
  8. DIGOXIN [Interacting]
     Indication: DRUG USE FOR UNKNOWN INDICATION
     Dosage: 0.25MG, DAILY DOSE AND FREQUENCY NOT PROVIDED
     Route: 048
     Dates: start: 20081230, end: 20090119
  9. ASPEGIC 1000 [Concomitant]
     Indication: DRUG USE FOR UNKNOWN INDICATION
     Dosage: UNKNOWN
     Dates: end: 20090113

REACTIONS (7)
  - DRUG INTERACTION [None]
  - FALL [None]
  - INTERNATIONAL NORMALISED RATIO INCREASED [None]
  - NAUSEA [None]
  - PSYCHOMOTOR SKILLS IMPAIRED [None]
  - THERAPEUTIC AGENT TOXICITY [None]
  - VOMITING [None]
